FAERS Safety Report 8587351-4 (Version None)
Quarter: 2012Q3

REPORT INFORMATION
  Report Type: 
  Country: None (occurrence: None)
  Receive Date: 20120810
  Receipt Date: 20120208
  Transmission Date: 20120928
  Serious: No
  Sender: FDA-Public Use
  Company Number: US-ASTRAZENECA-2012SE08470

PATIENT
  Sex: Female

DRUGS (2)
  1. ARIMIDEX [Suspect]
     Indication: BREAST CANCER
     Route: 048
     Dates: start: 20060101, end: 20120126
  2. LIPITOR [Concomitant]
     Indication: BLOOD CHOLESTEROL

REACTIONS (7)
  - CHILLS [None]
  - FATIGUE [None]
  - MENTAL IMPAIRMENT [None]
  - CONDITION AGGRAVATED [None]
  - MALAISE [None]
  - NAUSEA [None]
  - DRUG WITHDRAWAL SYNDROME [None]
